FAERS Safety Report 5067348-1 (Version None)
Quarter: 2006Q3

REPORT INFORMATION
  Report Type: 
  Country: None (occurrence: None)
  Receive Date: 20060714
  Receipt Date: 20060612
  Transmission Date: 20061208
  Serious: No
  Sender: FDA-Public Use
  Company Number: 2006SP002377

PATIENT
  Age: 63 Year
  Sex: Male
  Weight: 83.9154 kg

DRUGS (9)
  1. LUNESTA [Suspect]
     Indication: INSOMNIA
     Dosage: SEE IMAGE
     Route: 048
     Dates: start: 20050101, end: 20050101
  2. LUNESTA [Suspect]
     Indication: INSOMNIA
     Dosage: SEE IMAGE
     Route: 048
     Dates: start: 20050101, end: 20060601
  3. TYLENOL (CAPLET) [Concomitant]
  4. SINGULAIR [Concomitant]
  5. ACIPHEX [Concomitant]
  6. ALTACE [Concomitant]
  7. ATORVASTATIN CALCIUM [Concomitant]
  8. ASPIRIN [Concomitant]
  9. AMBIEN [Concomitant]

REACTIONS (2)
  - DRUG EFFECT DECREASED [None]
  - INSOMNIA [None]
